FAERS Safety Report 13141892 (Version 1)
Quarter: 2017Q1

REPORT INFORMATION
  Report Type: Spontaneous
  Country: US (occurrence: US)
  Receive Date: 20170123
  Receipt Date: 20170123
  Transmission Date: 20170428
  Serious: Yes (Hospitalization, Other)
  Sender: FDA-Public Use
  Company Number: US-MYLANLABS-2017M1002008

PATIENT

DRUGS (1)
  1. ISOSULFAN BLUE. [Suspect]
     Active Substance: ISOSULFAN BLUE
     Indication: HYSTERECTOMY
     Dosage: 5 ML, ONCE
     Route: 042
     Dates: start: 20160930, end: 20160930

REACTIONS (6)
  - Alopecia [Not Recovered/Not Resolved]
  - Bradycardia [Recovered/Resolved]
  - Wrong drug administered [Recovered/Resolved]
  - Pruritus [Not Recovered/Not Resolved]
  - Incorrect route of drug administration [Recovered/Resolved]
  - Skin discolouration [Recovered/Resolved]

NARRATIVE: CASE EVENT DATE: 20160930
